FAERS Safety Report 5798289-X (Version None)
Quarter: 2008Q3

REPORT INFORMATION
  Report Type: 
  Country: None (occurrence: None)
  Receive Date: 20080701
  Receipt Date: 20080623
  Transmission Date: 20090109
  Serious: Yes (Death)
  Sender: FDA-Public Use
  Company Number: APP200800555

PATIENT
  Age: 47 Year
  Sex: Male

DRUGS (1)
  1. HEPARIN SODIUM INJECTION [Suspect]
     Indication: THROMBOSIS PROPHYLAXIS
     Dosage: INTRAVENOUS DRIP
     Route: 041
     Dates: start: 20080111

REACTIONS (2)
  - CIRCULATORY COLLAPSE [None]
  - PULMONARY EMBOLISM [None]
